FAERS Safety Report 16084889 (Version 1)
Quarter: 2019Q1

REPORT INFORMATION
  Report Type: Spontaneous
  Country: DE (occurrence: DE)
  Receive Date: 20190318
  Receipt Date: 20190318
  Transmission Date: 20190418
  Serious: Yes (Other)
  Sender: FDA-Public Use
  Company Number: DE-SA-2019SA069959

PATIENT
  Age: 11 Year
  Sex: Male

DRUGS (1)
  1. ELOCTA [Suspect]
     Active Substance: EFMOROCTOCOG ALFA
     Route: 042

REACTIONS (1)
  - Muscle haemorrhage [Unknown]

NARRATIVE: CASE EVENT DATE: 20190304
